FAERS Safety Report 19064526 (Version 2)
Quarter: 2021Q2

REPORT INFORMATION
  Report Type: Spontaneous
  Country: US (occurrence: US)
  Receive Date: 20210327
  Receipt Date: 20210426
  Transmission Date: 20210717
  Serious: No
  Sender: FDA-Public Use
  Company Number: US-ORGANON-O2103USA002380

PATIENT
  Sex: Female

DRUGS (1)
  1. NEXPLANON [Suspect]
     Active Substance: ETONOGESTREL
     Indication: CONTRACEPTION
     Dosage: 1 IMPLANT, ONE TIME
     Route: 059
     Dates: start: 20200715, end: 20201104

REACTIONS (1)
  - Intermenstrual bleeding [Unknown]

NARRATIVE: CASE EVENT DATE: 2020
